FAERS Safety Report 13879439 (Version 1)
Quarter: 2017Q3

REPORT INFORMATION
  Report Type: Spontaneous
  Country: US (occurrence: US)
  Receive Date: 20170817
  Receipt Date: 20170817
  Transmission Date: 20171127
  Serious: No
  Sender: FDA-Public Use
  Company Number: US-TEIKOKU PHARMA USA-TPU2017-00422

PATIENT
  Sex: Male
  Weight: 113.5 kg

DRUGS (8)
  1. GABAPENTIN. [Concomitant]
     Active Substance: GABAPENTIN
     Indication: MUSCLE RELAXANT THERAPY
  2. LIDOCAINE PATCH [Suspect]
     Active Substance: LIDOCAINE
     Indication: SPINAL COLUMN STENOSIS
     Dosage: APPLY 2 OR 3 PATCHES ON THE BACK, WHERE THE PAIN IS, FOR 12 HOURS ON 12 HOURS OFF
     Route: 061
     Dates: start: 201707
  3. LIDOCAINE PATCH [Suspect]
     Active Substance: LIDOCAINE
     Indication: INTERVERTEBRAL DISC PROTRUSION
  4. BACLOFEN. [Concomitant]
     Active Substance: BACLOFEN
  5. LIDOCAINE PATCH [Suspect]
     Active Substance: LIDOCAINE
     Indication: JOINT DISLOCATION
  6. TYLENOL ARTHRITIS PAIN [Concomitant]
     Active Substance: ACETAMINOPHEN
     Dosage: 3 TABLETS, TAKEN WITH THE GABAPENTIN
     Dates: start: 2016
  7. GABAPENTIN. [Concomitant]
     Active Substance: GABAPENTIN
     Indication: INFLAMMATION
     Dates: start: 2016
  8. LIDOCAINE PATCH [Suspect]
     Active Substance: LIDOCAINE
     Indication: ARTHRITIS

REACTIONS (1)
  - Drug ineffective for unapproved indication [Unknown]
